FAERS Safety Report 19426402 (Version 1)
Quarter: 2021Q2

REPORT INFORMATION
  Report Type: Spontaneous
  Country: US (occurrence: US)
  Receive Date: 20210617
  Receipt Date: 20210617
  Transmission Date: 20210717
  Serious: Yes (Other)
  Sender: FDA-Public Use
  Company Number: US-HIKMA PHARMACEUTICALS USA INC.-US-H14001-21-02727

PATIENT
  Sex: Female

DRUGS (1)
  1. CEFOTAXIME [Suspect]
     Active Substance: CEFOTAXIME SODIUM
     Indication: PYELONEPHRITIS
     Dosage: UNKNOWN
     Route: 065

REACTIONS (7)
  - Tachycardia [Recovering/Resolving]
  - Jarisch-Herxheimer reaction [Recovering/Resolving]
  - Septic shock [Recovering/Resolving]
  - Dyspnoea [Recovering/Resolving]
  - Rash [Recovering/Resolving]
  - Hypotension [Recovering/Resolving]
  - Drug hypersensitivity [Recovering/Resolving]
